FAERS Safety Report 8449169-2 (Version None)
Quarter: 2012Q2

REPORT INFORMATION
  Report Type: 
  Country: None (occurrence: None)
  Receive Date: 20120619
  Receipt Date: 20120605
  Transmission Date: 20120825
  Serious: Yes (Hospitalization)
  Sender: FDA-Public Use
  Company Number: CH-INCYTE CORPORATION-2012IN000898

PATIENT
  Sex: Female
  Weight: 52 kg

DRUGS (3)
  1. MAGNESIUM [Concomitant]
     Dosage: UNK
     Dates: start: 20110816
  2. ASPIRIN [Concomitant]
     Dosage: UNK
     Dates: start: 20100913, end: 20120521
  3. INC424 [Suspect]
     Indication: MYELOFIBROSIS
     Dosage: 20 MG, BID
     Route: 048
     Dates: start: 20110816, end: 20120521

REACTIONS (5)
  - BLOOD CULTURE POSITIVE [None]
  - ENCEPHALITIS [None]
  - LISTERIOSIS [None]
  - EPILEPSY [None]
  - SEPSIS [None]
